FAERS Safety Report 7321011-2 (Version None)
Quarter: 2011Q1

REPORT INFORMATION
  Report Type: 
  Country: None (occurrence: None)
  Receive Date: 20110228
  Receipt Date: 20110218
  Transmission Date: 20110831
  Serious: Yes (Death)
  Sender: FDA-Public Use
  Company Number: US-JNJFOC-20100603335

PATIENT
  Sex: Female
  Weight: 111.13 kg

DRUGS (2)
  1. HYDROMORPHONE HCL [Suspect]
     Indication: ILL-DEFINED DISORDER
     Route: 065
  2. FENTANYL-100 [Suspect]
     Indication: PAIN
     Route: 062

REACTIONS (12)
  - SKIN IRRITATION [None]
  - PRODUCT QUALITY ISSUE [None]
  - TOXICITY TO VARIOUS AGENTS [None]
  - INTENTIONAL DRUG MISUSE [None]
  - WRONG TECHNIQUE IN DRUG USAGE PROCESS [None]
  - DRUG DIVERSION [None]
  - MUSCLE RIGIDITY [None]
  - ACCIDENTAL DEATH [None]
  - OVERDOSE [None]
  - SUDDEN DEATH [None]
  - RESPIRATORY ARREST [None]
  - DRUG ADMINISTERED AT INAPPROPRIATE SITE [None]
